FAERS Safety Report 8466783-9 (Version None)
Quarter: 2012Q2

REPORT INFORMATION
  Report Type: 
  Country: None (occurrence: None)
  Receive Date: 20120626
  Receipt Date: 20120618
  Transmission Date: 20120825
  Serious: Yes (Other)
  Sender: FDA-Public Use
  Company Number: US-FRI-1000031499

PATIENT
  Age: 31 Year
  Sex: Male

DRUGS (6)
  1. ABILIFY [Concomitant]
     Indication: DEPRESSION
  2. GABAPENTIN [Concomitant]
     Indication: ANXIETY
  3. VIIBRYD [Suspect]
     Indication: DEPRESSION
     Dosage: 10 MG
     Route: 048
     Dates: start: 20120409, end: 20120415
  4. VIIBRYD [Suspect]
     Dosage: 20 MG
     Route: 048
     Dates: start: 20120416, end: 20120422
  5. VIIBRYD [Suspect]
     Dosage: 40 MG
     Route: 048
     Dates: start: 20120423, end: 20120601
  6. VIIBRYD [Suspect]
     Dosage: 50 MG
     Route: 048
     Dates: start: 20120601

REACTIONS (1)
  - SUICIDAL IDEATION [None]
